FAERS Safety Report 5969892-9 (Version None)
Quarter: 2008Q4

REPORT INFORMATION
  Report Type: 
  Country: None (occurrence: None)
  Receive Date: 20081126
  Receipt Date: 20081117
  Transmission Date: 20090506
  Serious: Yes (Other)
  Sender: FDA-Public Use
  Company Number: GB-PFIZER INC-2008096683

PATIENT
  Age: 76 Year
  Sex: Female

DRUGS (8)
  1. CHAMPIX [Suspect]
     Indication: SMOKING CESSATION THERAPY
     Route: 048
     Dates: start: 20081003, end: 20081014
  2. ALENDRONATE SODIUM [Concomitant]
  3. AMITRIPTYLINE HCL [Concomitant]
     Route: 048
     Dates: start: 20081003
  4. CALCICHEW-D3 [Concomitant]
  5. CICLESONIDE [Concomitant]
     Route: 055
  6. LEVOTHYROXINE SODIUM [Concomitant]
  7. SALAMOL [Concomitant]
     Route: 055
  8. TIOTROPIUM BROMIDE [Concomitant]
     Route: 055

REACTIONS (1)
  - APHONIA [None]
